FAERS Safety Report 6804686-3 (Version None)
Quarter: 2010Q2

REPORT INFORMATION
  Report Type: 
  Country: None (occurrence: None)
  Receive Date: 20100628
  Receipt Date: 20070521
  Transmission Date: 20101027
  Serious: No
  Sender: FDA-Public Use
  Company Number: US-PFIZER INC-2007021651

PATIENT
  Sex: Male
  Weight: 104.78 kg

DRUGS (3)
  1. XALATAN [Suspect]
     Indication: GLAUCOMA
     Route: 031
     Dates: start: 20060101
  2. LIPITOR [Concomitant]
  3. LOTREL [Concomitant]

REACTIONS (6)
  - BLEPHARITIS [None]
  - DRY EYE [None]
  - EYE DISCHARGE [None]
  - EYE DISORDER [None]
  - EYE PRURITUS [None]
  - HYPERSENSITIVITY [None]
